FAERS Safety Report 24026987 (Version 3)
Quarter: 2024Q3

REPORT INFORMATION
  Report Type: Report from Study
  Country: IT (occurrence: IT)
  Receive Date: 20240628
  Receipt Date: 20240710
  Transmission Date: 20241016
  Serious: No
  Sender: ROCHE
  Company Number: IT-ROCHE-3553093

PATIENT
  Age: 67 Year
  Sex: Female
  Weight: 77.0 kg

DRUGS (2)
  1. ALECTINIB [Suspect]
     Active Substance: ALECTINIB
     Indication: Lung cancer metastatic
     Route: 048
     Dates: start: 20210804
  2. LORLATINIB [Concomitant]
     Active Substance: LORLATINIB
     Dates: start: 20231123

REACTIONS (2)
  - Dizziness [Recovered/Resolved]
  - Diplopia [Not Recovered/Not Resolved]

NARRATIVE: CASE EVENT DATE: 20231120
